FAERS Safety Report 16997254 (Version 1)
Quarter: 2019Q4

REPORT INFORMATION
  Report Type: Spontaneous
  Country: US (occurrence: US)
  Receive Date: 20191106
  Receipt Date: 20191106
  Transmission Date: 20200122
  Serious: Yes (Other)
  Sender: FDA-Public Use
  Company Number: US-LUPIN PHARMACEUTICALS INC.-2019-06973

PATIENT
  Age: 19 Year
  Sex: Male

DRUGS (6)
  1. LORAZEPAM. [Concomitant]
     Active Substance: LORAZEPAM
     Indication: CATATONIA
     Dosage: UNK
     Route: 048
     Dates: start: 201306
  2. LORAZEPAM. [Concomitant]
     Active Substance: LORAZEPAM
     Dosage: 20 MILLIGRAM, QD (TITRATED TO A MAXIMUM DOSE OF 20 MG/DAY OVER AN 11-MONTH PERIOD)
     Route: 065
  3. MEMANTINE. [Suspect]
     Active Substance: MEMANTINE
     Indication: CATATONIA
     Dosage: UNK (FOR A SHORT PERIOD )
     Route: 065
  4. LORAZEPAM. [Concomitant]
     Active Substance: LORAZEPAM
     Dosage: 3.5 MILLIGRAM
     Route: 065
  5. MINOCYCLINE [Suspect]
     Active Substance: MINOCYCLINE HYDROCHLORIDE
     Indication: PRODUCT USED FOR UNKNOWN INDICATION
     Dosage: UNK
     Route: 065
  6. LORAZEPAM. [Concomitant]
     Active Substance: LORAZEPAM
     Dosage: 4.5 MILLIGRAM, QD

REACTIONS (3)
  - Catatonia [Unknown]
  - Dizziness [Unknown]
  - Condition aggravated [Unknown]
